FAERS Safety Report 8587213-2 (Version None)
Quarter: 2012Q3

REPORT INFORMATION
  Report Type: 
  Country: None (occurrence: None)
  Receive Date: 20120810
  Receipt Date: 20110805
  Transmission Date: 20120928
  Serious: No
  Sender: FDA-Public Use
  Company Number: US-ASTRAZENECA-2011SE42456

PATIENT
  Age: 58 Year
  Sex: Female
  Weight: 77.6 kg

DRUGS (5)
  1. GABAPENTIN [Concomitant]
     Indication: NEURALGIA
  2. SULFADIAZINE [Concomitant]
  3. ARIMIDEX [Suspect]
     Indication: BREAST CANCER
     Route: 048
     Dates: start: 20110614, end: 20110621
  4. ZOCOR [Concomitant]
     Indication: HYPERTENSION
  5. TRAMADOL HCL [Concomitant]
     Indication: PAIN

REACTIONS (3)
  - FRUSTRATION [None]
  - SLEEP DISORDER DUE TO A GENERAL MEDICAL CONDITION [None]
  - HOT FLUSH [None]
